FAERS Safety Report 15633979 (Version 1)
Quarter: 2018Q4

REPORT INFORMATION
  Report Type: Spontaneous
  Country: US (occurrence: US)
  Receive Date: 20181119
  Receipt Date: 20181119
  Transmission Date: 20190205
  Serious: No
  Sender: FDA-Public Use
  Company Number: US-SA-2018SA314401

PATIENT
  Age: 53 Year
  Sex: Female

DRUGS (1)
  1. ACT RESTORING ANTICAVITY FLUORIDE COOL SPLASH MINT [Suspect]
     Active Substance: SODIUM FLUORIDE
     Dosage: UNK, UNK

REACTIONS (1)
  - Therapeutic response unexpected [Unknown]
